FAERS Safety Report 14341681 (Version 1)
Quarter: 2018Q1

REPORT INFORMATION
  Report Type: Spontaneous
  Country: US (occurrence: US)
  Receive Date: 20180102
  Receipt Date: 20180102
  Transmission Date: 20180509
  Serious: No
  Sender: FDA-Public Use
  Company Number: US-TEVA-795125USA

PATIENT
  Age: 70 Year
  Sex: Female

DRUGS (1)
  1. MINOXIDIL TOPICAL SOL MN [Suspect]
     Active Substance: MINOXIDIL
     Indication: ALOPECIA
     Route: 061

REACTIONS (2)
  - Drug ineffective [Unknown]
  - Product use issue [Unknown]
